FAERS Safety Report 17110148 (Version 2)
Quarter: 2019Q4

REPORT INFORMATION
  Report Type: Spontaneous
  Country: JP (occurrence: JP)
  Receive Date: 20191204
  Receipt Date: 20191209
  Transmission Date: 20200122
  Serious: Yes (Life-Threatening, Hospitalization)
  Sender: FDA-Public Use
  Company Number: JP-PFIZER INC-2019487810

PATIENT
  Age: 61 Year
  Sex: Male
  Weight: 62.8 kg

DRUGS (7)
  1. XYLOCAINE W/EPINEPHRIN [Concomitant]
     Indication: ANALGESIC THERAPY
     Dosage: UNK
     Route: 058
     Dates: start: 20191107, end: 20191107
  2. ATROPINE SULFATE. [Suspect]
     Active Substance: ATROPINE SULFATE
     Indication: ATRIOVENTRICULAR BLOCK
     Dosage: 0.5 (UNIT UNKNOWN) PER DOSE, THREE TIMES
     Route: 042
     Dates: start: 20191107, end: 20191107
  3. NORMAL SALINE [Concomitant]
     Active Substance: SODIUM CHLORIDE
     Indication: ANALGESIC THERAPY
     Dosage: UNK
     Route: 058
     Dates: start: 20191107, end: 20191107
  4. MEYLON [Concomitant]
     Active Substance: SODIUM BICARBONATE
     Indication: ANALGESIC THERAPY
     Dosage: UNK
     Route: 058
     Dates: start: 20191107, end: 20191107
  5. PRECEDEX [Suspect]
     Active Substance: DEXMEDETOMIDINE HYDROCHLORIDE
     Indication: SEDATION
     Dosage: 0.5 MCG/KG/HOUR
     Route: 041
     Dates: start: 20191107
  6. EPHEDRINE NAGAI [Suspect]
     Active Substance: EPHEDRINE HYDROCHLORIDE
     Indication: BLOOD ANTIDIURETIC HORMONE
     Dosage: 0.4-0.8 (UNIT UNKNOWN) PER DOSE, THREE TIMES
     Route: 042
     Dates: start: 20191107, end: 20191107
  7. PRECEDEX [Suspect]
     Active Substance: DEXMEDETOMIDINE HYDROCHLORIDE
     Dosage: 0.3-0.4 MCG/KG/HOUR (MAINTENANCE DOSE)
     Route: 041
     Dates: end: 20191107

REACTIONS (6)
  - Bradycardia [Recovering/Resolving]
  - Ventricular fibrillation [Recovered/Resolved]
  - Ventricular extrasystoles [Recovered/Resolved]
  - Atrioventricular block second degree [Recovered/Resolved]
  - Sinus tachycardia [Recovered/Resolved]
  - Blood pressure decreased [Recovered/Resolved]

NARRATIVE: CASE EVENT DATE: 20191107
